FAERS Safety Report 4585379-2 (Version None)
Quarter: 2005Q1

REPORT INFORMATION
  Report Type: 
  Country: None (occurrence: None)
  Receive Date: 20050214
  Receipt Date: 20040913
  Transmission Date: 20050727
  Serious: Yes (Death, Hospitalization)
  Sender: FDA-Public Use
  Company Number: 05-041

PATIENT
  Age: 69 Year
  Sex: Male

DRUGS (4)
  1. DEXAMETHASONE TAB [Suspect]
     Indication: MULTIPLE MYELOMA
     Dosage: 40 MG
     Dates: start: 20011008, end: 20011220
  2. DEXAMETHASONE TAB [Suspect]
     Indication: NEOPLASM RECURRENCE
     Dosage: 40 MG
     Dates: start: 20011008, end: 20011220
  3. GENASENSE [Concomitant]
  4. THALIDOME [Concomitant]

REACTIONS (1)
  - CARDIO-RESPIRATORY ARREST [None]
